FAERS Safety Report 4453912-7 (Version None)
Quarter: 2004Q3

REPORT INFORMATION
  Report Type: 
  Country: None (occurrence: None)
  Receive Date: 20040826
  Receipt Date: 20040624
  Transmission Date: 20050211
  Serious: No
  Sender: FDA-Public Use
  Company Number: WAES 0404USA02158

PATIENT
  Age: 42 Year
  Sex: Male
  Weight: 92.5338 kg

DRUGS (1)
  1. ZETIA [Suspect]
     Indication: HYPERLIPIDAEMIA
     Dosage: 10 MG/DAILY/PO
     Route: 048
     Dates: start: 20040315, end: 20040331

REACTIONS (2)
  - PRURITUS [None]
  - URTICARIA [None]
